FAERS Safety Report 7384123-3 (Version None)
Quarter: 2011Q1

REPORT INFORMATION
  Report Type: 
  Country: None (occurrence: None)
  Receive Date: 20110330
  Receipt Date: 20110323
  Transmission Date: 20110831
  Serious: Yes (Other)
  Sender: FDA-Public Use
  Company Number: A0919548A

PATIENT
  Age: 65 Year
  Sex: Male

DRUGS (7)
  1. ASPIRIN [Concomitant]
  2. ADVAIR DISKUS 100/50 [Suspect]
     Indication: CHRONIC OBSTRUCTIVE PULMONARY DISEASE
     Dosage: 2PUFF TWICE PER DAY
     Route: 055
     Dates: start: 20020301
  3. COMBIVENT [Concomitant]
  4. PLAVIX [Concomitant]
  5. IBUPROFEN [Concomitant]
  6. METOPROLOL [Concomitant]
  7. NITROGLYCERIN [Concomitant]

REACTIONS (3)
  - CATARACT [None]
  - OVERDOSE [None]
  - EXPIRED DRUG ADMINISTERED [None]
